FAERS Safety Report 9282578 (Version 1)
Quarter: 2013Q2

REPORT INFORMATION
  Report Type: Report from Study
  Country: DE (occurrence: DE)
  Receive Date: 20130510
  Receipt Date: 20130510
  Transmission Date: 20140414
  Serious: Yes (Death, Hospitalization)
  Sender: FDA-Public Use
  Company Number: PHHO2012DE016620

PATIENT
  Age: 51 Year
  Sex: Male
  Weight: 54.5 kg

DRUGS (5)
  1. AFINITOR [Suspect]
     Indication: GASTRIC CANCER
     Dosage: 10 MG, UNK
     Route: 048
     Dates: start: 20121114
  2. COMPARATOR PACLITAXEL [Suspect]
     Indication: GASTRIC CANCER
     Dosage: 136.8 MG, UNK
     Route: 042
     Dates: start: 20121114, end: 20121114
  3. MORPHINE [Concomitant]
     Indication: PAIN PROPHYLAXIS
     Dosage: 10 MG, UNK
     Route: 042
     Dates: start: 20121114, end: 20121114
  4. HUMAN ALBUMIN [Concomitant]
     Indication: GENERAL PHYSICAL HEALTH DETERIORATION
     Dosage: 20 %, UNK
     Route: 042
     Dates: start: 20121112
  5. AMINOMIX [Concomitant]
     Indication: MEDICAL DIET
     Dosage: 1000 MLI, UNK
     Route: 042
     Dates: start: 20121111

REACTIONS (2)
  - Pleural effusion [Fatal]
  - General physical health deterioration [Fatal]
